FAERS Safety Report 14971962 (Version 2)
Quarter: 2018Q2

REPORT INFORMATION
  Report Type: Report from Study
  Country: None (occurrence: DO)
  Receive Date: 20180605
  Receipt Date: 20180615
  Transmission Date: 20180711
  Serious: Yes (Other)
  Sender: FDA-Public Use
  Company Number: DO-ABBVIE-18K-279-2367468-00

PATIENT
  Age: 32 Year
  Sex: Female

DRUGS (2)
  1. HUMIRA [Suspect]
     Active Substance: ADALIMUMAB
     Indication: CROHN^S DISEASE
     Route: 058
     Dates: start: 20170118
  2. HUMIRA [Suspect]
     Active Substance: ADALIMUMAB
     Dosage: DOSE INCREASED
     Route: 058

REACTIONS (12)
  - Rectal haemorrhage [Not Recovered/Not Resolved]
  - Headache [Recovering/Resolving]
  - Purulent discharge [Not Recovered/Not Resolved]
  - Anal fistula [Recovering/Resolving]
  - Diarrhoea [Not Recovered/Not Resolved]
  - Procedural pain [Recovering/Resolving]
  - Mass [Recovering/Resolving]
  - Fistula [Not Recovered/Not Resolved]
  - Rectal fissure [Not Recovered/Not Resolved]
  - Anaemia [Recovering/Resolving]
  - Frequent bowel movements [Not Recovered/Not Resolved]
  - Fistula discharge [Recovering/Resolving]

NARRATIVE: CASE EVENT DATE: 20180503
